FAERS Safety Report 25543719 (Version 1)
Quarter: 2025Q3

REPORT INFORMATION
  Report Type: Other
  Country: CA (occurrence: CA)
  Receive Date: 20250711
  Receipt Date: 20250711
  Transmission Date: 20251021
  Serious: Yes (Hospitalization, Other)
  Sender: INCYTE
  Company Number: CA-INCYTE CORPORATION-2025IN007525

PATIENT
  Age: 13 Year
  Weight: 59 kg

DRUGS (3)
  1. PEMAZYRE [Suspect]
     Active Substance: PEMIGATINIB
     Indication: Glioneuronal tumour
     Dosage: 13.5 MILLIGRAM, QD
  2. LACOSAMIDE [Concomitant]
     Active Substance: LACOSAMIDE
     Indication: Product used for unknown indication
     Route: 065
  3. LEVETIRACETAM [Concomitant]
     Active Substance: LEVETIRACETAM
     Indication: Product used for unknown indication
     Route: 065

REACTIONS (4)
  - Epiphysiolysis [Recovered/Resolved]
  - Femur fracture [Recovered/Resolved]
  - Osteoporosis [Recovered/Resolved]
  - Off label use [Unknown]
